FAERS Safety Report 21941327 (Version 1)
Quarter: 2023Q1

REPORT INFORMATION
  Report Type: Spontaneous
  Country: US (occurrence: US)
  Receive Date: 20230202
  Receipt Date: 20230202
  Transmission Date: 20230418
  Serious: Yes (Other)
  Sender: FDA-Public Use
  Company Number: US-SUN PHARMACEUTICAL INDUSTRIES LTD-2023R1-375867

PATIENT
  Age: 23 Year
  Sex: Female

DRUGS (3)
  1. HYDROXYCHLOROQUINE [Suspect]
     Active Substance: HYDROXYCHLOROQUINE
     Indication: Atrioventricular block
     Dosage: UNK
     Route: 065
  2. PREDNISONE [Suspect]
     Active Substance: PREDNISONE
     Indication: Mastitis
     Dosage: UNK
     Route: 065
  3. CABERGOLINE [Suspect]
     Active Substance: CABERGOLINE
     Indication: Lactation inhibition therapy
     Dosage: 0.5 MILLIGRAM, BID WEEKLY
     Route: 065

REACTIONS (3)
  - Therapy non-responder [Unknown]
  - Maternal exposure during pregnancy [Unknown]
  - Live birth [Unknown]
